FAERS Safety Report 9115701 (Version 1)
Quarter: 2013Q1

REPORT INFORMATION
  Report Type: Spontaneous
  Country: BG (occurrence: None)
  Receive Date: 20130129
  Receipt Date: 20130129
  Transmission Date: 20140127
  Serious: Yes (Hospitalization, Other)
  Sender: FDA-Public Use
  Company Number: IMP_06144_2013

PATIENT
  Age: 21 Year
  Sex: Female

DRUGS (3)
  1. BACLOFEN (BACLOFEN) (BACLOFEN) [Suspect]
     Indication: PRODUCT USED FOR UNKNOWN INDICATION
     Dosage: ( [NOT THE PRESCRIBED AMOUNT]  ORAL)?(UNKNOWN UNTIL NOT CONTINUING)
     Route: 048
  2. THIORIDAZIN [Suspect]
     Indication: PRODUCT USED FOR UNKNOWN INDICATION
     Dosage: ( [NOT THE  PRESCRIBED AMOUNT]  ORAL)?(UNKNOWN UNTIL NOT CONTINUING)
     Route: 048
  3. LISINOPRIL [Suspect]
     Indication: PRODUCT USED FOR UNKNOWN INDICATION
     Dosage: ( [ NOT THE PRESCRIBED AMOUNT]  ORAL)?(UNKNOWN UNTIL NOT CONTINUING)
     Route: 048

REACTIONS (10)
  - Unresponsive to stimuli [None]
  - Suicide attempt [None]
  - Dry skin [None]
  - Coma [None]
  - Hypotonia [None]
  - Hyporeflexia [None]
  - Convulsion [None]
  - Respiratory failure [None]
  - Overdose [None]
  - Mucosal dryness [None]
